FAERS Safety Report 6778893-2 (Version None)
Quarter: 2010Q2

REPORT INFORMATION
  Report Type: 
  Country: None (occurrence: None)
  Receive Date: 20100618
  Receipt Date: 20100615
  Transmission Date: 20101027
  Serious: Yes (Hospitalization)
  Sender: FDA-Public Use
  Company Number: FR-KINGPHARMUSA00001-K201000742

PATIENT
  Age: 67 Year
  Sex: Male

DRUGS (8)
  1. ALTACE [Suspect]
     Dosage: 1.25 MG, BID
     Route: 048
  2. PRISTINAMYCIN [Suspect]
     Dosage: 1 G, TID
     Route: 048
     Dates: start: 20101003, end: 20100310
  3. LASIX [Suspect]
     Dosage: 40 MG, BID
     Route: 048
  4. XATRAL [Suspect]
     Dosage: 10 MG, UNK
     Route: 048
  5. DIGITALINE NATIVELLE [Suspect]
     Dosage: 0.25 MG, QD
     Route: 048
  6. PREVISCAN [Suspect]
     Dosage: 20 MG, UNK
     Route: 048
  7. ISOPTIN [Suspect]
     Dosage: 40 MG, BID
     Route: 048
  8. SYMBICORT [Suspect]
     Dosage: UNK
     Route: 002

REACTIONS (2)
  - BRONCHITIS [None]
  - THROMBOCYTOPENIA [None]
